FAERS Safety Report 6587734-8 (Version None)
Quarter: 2010Q1

REPORT INFORMATION
  Report Type: 
  Country: None (occurrence: None)
  Receive Date: 20100217
  Receipt Date: 20100217
  Transmission Date: 20100710
  Serious: Yes (Disabling, Other)
  Sender: FDA-Public Use
  Company Number: None

PATIENT
  Sex: Female
  Weight: 61.2356 kg

DRUGS (1)
  1. CIPROFLOXACIN HCL [Suspect]
     Indication: URINARY TRACT DISORDER
     Dosage: ONE TABLET TWICE A DAY PO
     Route: 048
     Dates: start: 20091222, end: 20100127

REACTIONS (5)
  - ACTIVITIES OF DAILY LIVING IMPAIRED [None]
  - ARTHRITIS [None]
  - CONDITION AGGRAVATED [None]
  - INSOMNIA [None]
  - URINARY TRACT DISORDER [None]
